FAERS Safety Report 19418267 (Version 2)
Quarter: 2022Q1

REPORT INFORMATION
  Report Type: Spontaneous
  Country: US (occurrence: US)
  Receive Date: 20210615
  Receipt Date: 20220301
  Transmission Date: 20220423
  Serious: No
  Sender: FDA-Public Use
  Company Number: US-PFIZER INC-2021604207

PATIENT
  Age: 26 Year
  Sex: Female
  Weight: 69.4 kg

DRUGS (1)
  1. XELJANZ [Suspect]
     Active Substance: TOFACITINIB CITRATE
     Indication: Juvenile idiopathic arthritis
     Dosage: 10 MG, DAILY
     Route: 048
     Dates: start: 201907

REACTIONS (2)
  - Pain [Not Recovered/Not Resolved]
  - Loss of personal independence in daily activities [Unknown]
